FAERS Safety Report 16973856 (Version 2)
Quarter: 2020Q1

REPORT INFORMATION
  Report Type: Spontaneous
  Country: IT (occurrence: IT)
  Receive Date: 20191030
  Receipt Date: 20200121
  Transmission Date: 20200409
  Serious: Yes (Hospitalization)
  Sender: FDA-Public Use
  Company Number: IT-SUN PHARMACEUTICAL INDUSTRIES LTD-2019RR-225547

PATIENT
  Age: 73 Year
  Sex: Male

DRUGS (2)
  1. CARBOPLATIN. [Suspect]
     Active Substance: CARBOPLATIN
     Indication: LEIOMYOSARCOMA
     Dosage: 250 MILLIGRAM, CYCLICAL
     Route: 042
     Dates: start: 20190704, end: 20190704
  2. GEMCITABINE. [Suspect]
     Active Substance: GEMCITABINE
     Indication: LEIOMYOSARCOMA
     Dosage: 1400 MILLIGRAM, CYCLICAL
     Route: 042
     Dates: start: 20190704, end: 20190704

REACTIONS (3)
  - Respiratory failure [Recovering/Resolving]
  - Dyspnoea [Recovering/Resolving]
  - Q fever [Recovering/Resolving]

NARRATIVE: CASE EVENT DATE: 20190709
